FAERS Safety Report 9090248 (Version 1)
Quarter: 2013Q1

REPORT INFORMATION
  Report Type: Report from Study
  Country: US (occurrence: US)
  Receive Date: 20130130
  Receipt Date: 20130130
  Transmission Date: 20140127
  Serious: No
  Sender: FDA-Public Use
  Company Number: US-ABBOTT-12P-163-0978537-00

PATIENT
  Age: 27 Year
  Sex: Female

DRUGS (5)
  1. HUMIRA [Suspect]
     Indication: CROHN^S DISEASE
     Dates: start: 201006
  2. ASACOL HD [Concomitant]
     Indication: CROHN^S DISEASE
  3. MULTIVITAMIN [Concomitant]
     Indication: CROHN^S DISEASE
     Dosage: DAILY
  4. CALCIUM D [Concomitant]
     Indication: CROHN^S DISEASE
     Dosage: DAILY
  5. FIBER VITAMIN [Concomitant]
     Indication: CROHN^S DISEASE
     Dosage: DAILY

REACTIONS (1)
  - Tinea infection [Not Recovered/Not Resolved]
